FAERS Safety Report 4744270-9 (Version None)
Quarter: 2005Q3

REPORT INFORMATION
  Report Type: 
  Country: None (occurrence: None)
  Receive Date: 20050812
  Receipt Date: 20050705
  Transmission Date: 20060218
  Serious: Yes (Hospitalization, Other)
  Sender: FDA-Public Use
  Company Number: US-BRISTOL-MYERS SQUIBB COMPANY-13025150

PATIENT
  Age: 23 Year
  Sex: Female

DRUGS (4)
  1. ABILIFY [Suspect]
     Indication: DEPRESSION
     Route: 048
     Dates: start: 20041223, end: 20050225
  2. ABILIFY [Suspect]
     Indication: PSYCHOTIC DISORDER
     Route: 048
     Dates: start: 20041223, end: 20050225
  3. ABILIFY [Suspect]
     Indication: HALLUCINATIONS, MIXED
     Route: 048
     Dates: start: 20041223, end: 20050225
  4. LEXAPRO [Concomitant]
     Dosage: DOSE INCR TO 20 MG 18-NOV-2004 TO 25-FEB-2005,10 MG 03-MAR-2005 TO 05-05-2005,THEN 20 MG 05-05-2005
     Route: 048
     Dates: start: 20011014

REACTIONS (3)
  - DRUG EXPOSURE DURING PREGNANCY [None]
  - INTRA-UTERINE DEATH [None]
  - PREGNANCY [None]
